FAERS Safety Report 5806888-1 (Version None)
Quarter: 2008Q3

REPORT INFORMATION
  Report Type: 
  Country: None (occurrence: None)
  Receive Date: 20080711
  Receipt Date: 20080702
  Transmission Date: 20090109
  Serious: Yes (Other)
  Sender: FDA-Public Use
  Company Number: US-ROCHE-573651

PATIENT
  Sex: Female
  Weight: 51.7 kg

DRUGS (2)
  1. CAPECITABINE [Suspect]
     Dosage: FREQUENCY: IN THE MORNING AND IN THE EVENING
     Route: 048
     Dates: start: 20080115
  2. CAPECITABINE [Suspect]
     Dosage: LOWER DOSAGE
     Route: 048
     Dates: end: 20080605

REACTIONS (2)
  - DISEASE PROGRESSION [None]
  - PALMAR-PLANTAR ERYTHRODYSAESTHESIA SYNDROME [None]
